FAERS Safety Report 13519063 (Version 3)
Quarter: 2017Q2

REPORT INFORMATION
  Report Type: Report from Study
  Country: IT (occurrence: IT)
  Receive Date: 20170505
  Receipt Date: 20170516
  Transmission Date: 20170830
  Serious: Yes (Other)
  Sender: FDA-Public Use
  Company Number: IT-MYLANLABS-2017M1027252

PATIENT

DRUGS (2)
  1. ATENOLOL. [Suspect]
     Active Substance: ATENOLOL
     Indication: HEADACHE
     Dosage: 50 MG, QD
     Route: 048
     Dates: start: 20160101
  2. STUGERON [Concomitant]
     Active Substance: CINNARIZINE
     Indication: PRODUCT USED FOR UNKNOWN INDICATION
     Dosage: UNK

REACTIONS (6)
  - Loss of consciousness [Unknown]
  - Syncope [Unknown]
  - Off label use [Unknown]
  - Vision blurred [Unknown]
  - Hyperhidrosis [Unknown]
  - Bradycardia [Unknown]

NARRATIVE: CASE EVENT DATE: 20160101
